FAERS Safety Report 4931301-6 (Version None)
Quarter: 2006Q1

REPORT INFORMATION
  Report Type: 
  Country: None (occurrence: None)
  Receive Date: 20060227
  Receipt Date: 20041222
  Transmission Date: 20060701
  Serious: Yes (Other)
  Sender: FDA-Public Use
  Company Number: 2004-01020

PATIENT

DRUGS (1)
  1. VELCADE [Suspect]

REACTIONS (1)
  - DISEASE PROGRESSION [None]
